FAERS Safety Report 22088027 (Version 1)
Quarter: 2023Q1

REPORT INFORMATION
  Report Type: Report from Study
  Country: US (occurrence: US)
  Receive Date: 20230313
  Receipt Date: 20230313
  Transmission Date: 20230418
  Serious: Yes (Other)
  Sender: FDA-Public Use
  Company Number: US-ABBVIE-4337272

PATIENT
  Sex: Male

DRUGS (1)
  1. HUMIRA [Suspect]
     Active Substance: ADALIMUMAB
     Indication: Crohn^s disease
     Route: 058
     Dates: start: 20181222

REACTIONS (4)
  - Intestinal obstruction [Unknown]
  - Faeces discoloured [Recovered/Resolved]
  - Gastrointestinal bacterial infection [Recovered/Resolved]
  - Diarrhoea [Recovered/Resolved]
